FAERS Safety Report 6475673-2 (Version None)
Quarter: 2009Q4

REPORT INFORMATION
  Report Type: 
  Country: None (occurrence: None)
  Receive Date: 20091204
  Receipt Date: 20090103
  Transmission Date: 20100525
  Serious: No
  Sender: FDA-Public Use
  Company Number: US-AMGEN-KDL326782

PATIENT
  Sex: Female

DRUGS (2)
  1. ENBREL [Suspect]
     Indication: PSORIATIC ARTHROPATHY
     Route: 058
     Dates: start: 20060601, end: 20081101
  2. ENBREL [Suspect]
     Indication: PSORIASIS

REACTIONS (3)
  - INFLUENZA [None]
  - PSORIASIS [None]
  - THERAPEUTIC RESPONSE DECREASED [None]
